FAERS Safety Report 9043211 (Version 1)
Quarter: 2013Q1

REPORT INFORMATION
  Report Type: Report from Study
  Country: US (occurrence: US)
  Receive Date: 20130129
  Receipt Date: 20130129
  Transmission Date: 20140127
  Serious: No
  Sender: FDA-Public Use
  Company Number: US-ABBOTT-12P-163-0911093-00

PATIENT
  Age: 61 Year
  Sex: Female

DRUGS (10)
  1. HUMIRA 40 MG/ 0.8 ML PRE-FILLED SYRINGE [Suspect]
     Indication: COLITIS ULCERATIVE
     Dosage: LOADING DOSE
     Dates: start: 20120227, end: 20120227
  2. HUMIRA 40 MG/ 0.8 ML PRE-FILLED SYRINGE [Suspect]
  3. ATENOLOL [Concomitant]
     Indication: BLOOD PRESSURE
  4. PLAVIX [Concomitant]
     Indication: THROMBOSIS
  5. TYLENOL OTC [Concomitant]
     Indication: PROCEDURAL PAIN
  6. DILAUDID [Concomitant]
     Indication: PAIN MANAGEMENT
     Dosage: GENERIC
  7. IMODIUM AD [Concomitant]
     Indication: COLITIS
     Dosage: UP TO 4 DOSES A DAY
  8. ADVAIR [Concomitant]
     Indication: CHRONIC OBSTRUCTIVE PULMONARY DISEASE
     Dosage: 2.5 ONE PUFF MORNING AND
  9. COMBIVENT [Concomitant]
     Indication: ASTHMA
     Dosage: MORNING AND EVENING
  10. COMBIVENT [Concomitant]
     Indication: CHRONIC OBSTRUCTIVE PULMONARY DISEASE

REACTIONS (1)
  - Local swelling [Not Recovered/Not Resolved]
